FAERS Safety Report 4401485-7 (Version None)
Quarter: 2004Q3

REPORT INFORMATION
  Report Type: 
  Country: None (occurrence: None)
  Receive Date: 20040907
  Receipt Date: 20040527
  Transmission Date: 20050211
  Serious: No
  Sender: FDA-Public Use
  Company Number: US-BRISTOL-MYERS SQUIBB COMPANY-12597779

PATIENT
  Age: 94 Year
  Sex: Female

DRUGS (2)
  1. COUMADIN [Suspect]
     Dates: end: 20040419
  2. BEN GAY [Suspect]
     Dates: start: 20040419

REACTIONS (1)
  - SKIN DISCOLOURATION [None]
